FAERS Safety Report 9110498 (Version 2)
Quarter: 2013Q1

REPORT INFORMATION
  Report Type: Report from Study
  Country: US (occurrence: US)
  Receive Date: 20130223
  Receipt Date: 20130321
  Transmission Date: 20140127
  Serious: Yes (Hospitalization)
  Sender: FDA-Public Use
  Company Number: US-US-EMD SERONO, INC.-7194782

PATIENT
  Age: 69 Year
  Sex: Female

DRUGS (2)
  1. REBIF [Suspect]
     Indication: PRODUCT USED FOR UNKNOWN INDICATION
     Route: 058
     Dates: start: 20111111, end: 201301
  2. REBIF [Suspect]
     Route: 058

REACTIONS (2)
  - Mitral valve replacement [Recovering/Resolving]
  - Aortic valve replacement [Recovering/Resolving]
